FAERS Safety Report 20599008 (Version 2)
Quarter: 2022Q3

REPORT INFORMATION
  Report Type: Report from Study
  Country: DK (occurrence: None)
  Receive Date: 20220315
  Receipt Date: 20220725
  Transmission Date: 20221027
  Serious: Yes (Hospitalization)
  Sender: FDA-Public Use
  Company Number: DK-ROCHE-3042485

PATIENT
  Age: 55 Year
  Sex: Male
  Weight: 98 kg

DRUGS (4)
  1. ATEZOLIZUMAB [Suspect]
     Active Substance: ATEZOLIZUMAB
     Indication: Colorectal cancer
     Route: 041
     Dates: start: 20220114, end: 20220114
  2. POLYETHYLENE GLYCOLS [Concomitant]
     Active Substance: POLYETHYLENE GLYCOLS
     Indication: Constipation
     Dosage: 4 PACKETS
     Route: 048
     Dates: start: 20200909
  3. SODIUM PICOSULFATE [Concomitant]
     Active Substance: SODIUM PICOSULFATE
     Indication: Constipation
     Dosage: 10 DROPS
     Route: 048
     Dates: start: 20220222
  4. LAVEMENT PHOSPHATE [Concomitant]
     Indication: Constipation
     Dosage: ONE TIME
     Route: 054

REACTIONS (1)
  - Constipation [Recovered/Resolved]

NARRATIVE: CASE EVENT DATE: 20220222
